FAERS Safety Report 18079342 (Version 1)
Quarter: 2020Q3

REPORT INFORMATION
  Report Type: Spontaneous
  Country: US (occurrence: US)
  Receive Date: 20200727
  Receipt Date: 20200727
  Transmission Date: 20201103
  Serious: Yes (Hospitalization)
  Sender: FDA-Public Use
  Company Number: None

PATIENT
  Age: 72 Year
  Sex: Female
  Weight: 100.35 kg

DRUGS (9)
  1. ZARXIO [Suspect]
     Active Substance: FILGRASTIM-SNDZ
     Indication: ENDOMETRIAL CANCER
     Dosage: ?          OTHER FREQUENCY:DAILYX3 DAYS;?
     Route: 058
  2. ZARXIO [Suspect]
     Active Substance: FILGRASTIM-SNDZ
     Indication: AGRANULOCYTOSIS
     Dosage: ?          OTHER FREQUENCY:DAILYX3 DAYS;?
     Route: 058
  3. PEPCID [Concomitant]
     Active Substance: FAMOTIDINE
  4. NYSTATIN. [Concomitant]
     Active Substance: NYSTATIN
  5. ZOFRAN [Concomitant]
     Active Substance: ONDANSETRON HYDROCHLORIDE
  6. SMOOTH LAX [Concomitant]
     Active Substance: POLYETHYLENE GLYCOL 3350
  7. ENOXAPARIN [Concomitant]
     Active Substance: ENOXAPARIN
  8. STOOL SOFTENER (DOCUSATE) [Concomitant]
     Active Substance: DOCUSATE
  9. PROCHLORPERAZINE MALEATE. [Concomitant]
     Active Substance: PROCHLORPERAZINE MALEATE

REACTIONS (1)
  - Haemorrhage [None]

NARRATIVE: CASE EVENT DATE: 20200727
